FAERS Safety Report 8825243 (Version 3)
Quarter: 2013Q1

REPORT INFORMATION
  Report Type: Report from Study
  Country: JP (occurrence: JP)
  Receive Date: 20121004
  Receipt Date: 20130208
  Transmission Date: 20140127
  Serious: Yes (Hospitalization, Other)
  Sender: FDA-Public Use
  Company Number: JP-VERTEX PHARMACEUTICAL INC.-2012-022099

PATIENT
  Age: 60 Year
  Sex: Female

DRUGS (28)
  1. VX-950 (TELAPREVIR) [Suspect]
     Indication: CHRONIC HEPATITIS C
     Dosage: 1500 MG, QD
     Route: 048
     Dates: start: 20120803, end: 20120920
  2. VX-950 (TELAPREVIR) [Suspect]
     Dosage: 750 MG, QD
     Route: 048
     Dates: start: 20121002
  3. RIBAVIRIN [Suspect]
     Indication: CHRONIC HEPATITIS C
     Dosage: 600 MG, QD
     Route: 048
     Dates: start: 20120803, end: 20120809
  4. RIBAVIRIN [Suspect]
     Dosage: 400 MG, QD
     Route: 048
     Dates: start: 20120810, end: 20120816
  5. RIBAVIRIN [Suspect]
     Dosage: 200 MG, QD
     Route: 048
     Dates: start: 20120817, end: 20120920
  6. RIBAVIRIN [Suspect]
     Dosage: 200 MG, QD
     Route: 048
     Dates: start: 20121002, end: 20130125
  7. PEGINTERFERON ALFA-2B [Suspect]
     Indication: CHRONIC HEPATITIS C
     Dosage: 1.5 ?G/KG, QW
     Route: 058
     Dates: start: 20120803, end: 20120920
  8. PEGINTERFERON ALFA-2B [Suspect]
     Dosage: 1 ?G/KG, QW
     Route: 058
     Dates: start: 20120921, end: 20120927
  9. PEGINTERFERON ALFA-2B [Suspect]
     Dosage: 1.5 ?G/KG, QW
     Route: 058
     Dates: start: 20121002, end: 20130118
  10. RENIVACE [Concomitant]
     Dosage: 5 MG, QD
     Route: 048
     Dates: end: 20120921
  11. RENIVACE [Concomitant]
     Dosage: 5 MG, QD
     Dates: start: 20121109
  12. ADALAT CR [Concomitant]
     Dosage: 40 MG, QD
     Route: 048
  13. ADALAT CR [Concomitant]
     Dosage: 40 MG, QD
     Route: 048
     Dates: start: 20121109
  14. PREMINENT [Concomitant]
     Dosage: 1 DF, QD
     Route: 048
     Dates: end: 20120921
  15. LASIX [Concomitant]
     Dosage: 20 MG, QD
     Route: 048
     Dates: end: 20120920
  16. NOVORAPID FLEXPEN [Concomitant]
     Dosage: 8 DF, QD
     Route: 058
  17. NOVORAPID 30 MIX [Concomitant]
     Dosage: 6 DF, QD
     Route: 058
  18. MENTAX [Concomitant]
     Dosage: UNK, PRN
     Route: 061
     Dates: start: 20120803, end: 20120914
  19. HIRUDOID [Concomitant]
     Dosage: UNK, PRN
     Route: 048
     Dates: start: 20120803, end: 20120914
  20. HIRUDOID [Concomitant]
     Dosage: UNK, PRN
     Route: 051
     Dates: start: 20121026
  21. NAUZELIN [Concomitant]
     Route: 054
  22. LENDORMIN [Concomitant]
     Dosage: 0.25 MG, QD
     Route: 048
  23. URSO [Concomitant]
     Dosage: 900 MG, QD
     Route: 048
  24. ATARAX-P [Concomitant]
     Dosage: 25 MG, PRN
     Route: 058
     Dates: start: 20121001, end: 20121026
  25. FEBURIC [Concomitant]
     Dosage: 20 MG, QD
     Route: 048
  26. HIRUDOID SOFT [Concomitant]
     Dosage: UNK, PRN
     Route: 061
     Dates: start: 20121026, end: 20121112
  27. KENALOG [Concomitant]
     Dosage: UNK, PRN
     Route: 061
  28. AFTACH [Concomitant]
     Dosage: 1 DF, QD
     Route: 051

REACTIONS (4)
  - Decreased appetite [Recovered/Resolved]
  - Anaemia [Not Recovered/Not Resolved]
  - Haemoglobin decreased [Not Recovered/Not Resolved]
  - Haemoglobin decreased [Recovered/Resolved]
